FAERS Safety Report 4567789-2 (Version None)
Quarter: 2005Q1

REPORT INFORMATION
  Report Type: 
  Country: None (occurrence: None)
  Receive Date: 20050125
  Receipt Date: 20050125
  Transmission Date: 20050727
  Serious: Yes (Hospitalization)
  Sender: FDA-Public Use
  Company Number: None

PATIENT
  Age: 27 Year
  Sex: Female
  Weight: 73.5 kg

DRUGS (5)
  1. TAXOL [Suspect]
     Indication: OVARIAN CANCER
     Dosage: 310 MG/Q 3 WEEKS
     Dates: start: 20050105
  2. CARBOPLATIN [Suspect]
     Indication: OVARIAN CANCER
     Dosage: 863 MG/ Q 3 WEEKS
     Dates: start: 20050105
  3. ZOFRAN [Concomitant]
  4. DECADRON [Concomitant]
  5. BENADRYL [Concomitant]

REACTIONS (4)
  - FEBRILE NEUTROPENIA [None]
  - GINGIVAL PAIN [None]
  - ORAL INFECTION [None]
  - TOOTHACHE [None]
